FAERS Safety Report 7672386-6 (Version None)
Quarter: 2011Q3

REPORT INFORMATION
  Report Type: 
  Country: None (occurrence: None)
  Receive Date: 20110809
  Receipt Date: 20110725
  Transmission Date: 20111222
  Serious: Yes (Death)
  Sender: FDA-Public Use
  Company Number: NZ-WATSON-2011-11974

PATIENT
  Age: 3 Year

DRUGS (1)
  1. ISOFLURANE [Suspect]
     Indication: ANAESTHESIA
     Dosage: UNK

REACTIONS (2)
  - CARDIAC ARREST [None]
  - HAEMODYNAMIC INSTABILITY [None]
